FAERS Safety Report 7534156-9 (Version None)
Quarter: 2011Q2

REPORT INFORMATION
  Report Type: 
  Country: None (occurrence: None)
  Receive Date: 20110608
  Receipt Date: 20061109
  Transmission Date: 20111010
  Serious: Yes (Hospitalization)
  Sender: FDA-Public Use
  Company Number: PHFR2006GB03209

PATIENT
  Sex: Female

DRUGS (1)
  1. CLOZAPINE [Suspect]
     Indication: PSYCHOTIC DISORDER
     Dosage: 12.5 MG, PER DAY
     Route: 048
     Dates: start: 20050310

REACTIONS (3)
  - INTESTINAL OBSTRUCTION [None]
  - VOLVULUS [None]
  - ABDOMINAL PAIN UPPER [None]
